FAERS Safety Report 16872176 (Version 1)
Quarter: 2019Q4

REPORT INFORMATION
  Report Type: Spontaneous
  Country: US (occurrence: US)
  Receive Date: 20191001
  Receipt Date: 20191001
  Transmission Date: 20200122
  Serious: No
  Sender: FDA-Public Use
  Company Number: US-ALLERGAN-1935644US

PATIENT
  Sex: Female

DRUGS (1)
  1. VRAYLAR [Suspect]
     Active Substance: CARIPRAZINE
     Indication: SCHIZOPHRENIA
     Dosage: 6 MG, BI-WEEKLY (6MG ON MONDAY AND 6MG ON FRIDAY OF EACH WEEK)
     Route: 065

REACTIONS (1)
  - Off label use [Unknown]
